FAERS Safety Report 5634552-0 (Version None)
Quarter: 2008Q1

REPORT INFORMATION
  Report Type: 
  Country: None (occurrence: None)
  Receive Date: 20080222
  Receipt Date: 20080213
  Transmission Date: 20080703
  Serious: Yes (Other)
  Sender: FDA-Public Use
  Company Number: PHBS2008BR02197

PATIENT
  Sex: Female

DRUGS (1)
  1. ACLASTA [Suspect]
     Indication: OSTEOPOROSIS
     Dosage: 1 DF EVERY 12 MONTHS
     Route: 042
     Dates: start: 20080206

REACTIONS (4)
  - DERMATITIS BULLOUS [None]
  - HAEMORRHAGE [None]
  - HYPOTENSION [None]
  - MALAISE [None]
